FAERS Safety Report 5997555-2 (Version None)
Quarter: 2008Q4

REPORT INFORMATION
  Report Type: 
  Country: None (occurrence: None)
  Receive Date: 20081212
  Receipt Date: 20081113
  Transmission Date: 20090506
  Serious: No
  Sender: FDA-Public Use
  Company Number: US-ABBOTT-08P-163-0487947-00

PATIENT
  Sex: Female
  Weight: 57.204 kg

DRUGS (14)
  1. HUMIRA [Suspect]
     Indication: RHEUMATOID ARTHRITIS
     Route: 058
     Dates: start: 20080404, end: 20080701
  2. HUMIRA [Suspect]
     Route: 058
     Dates: start: 20080829
  3. OXYCODONE HCL [Concomitant]
     Indication: ARTHRALGIA
  4. OXYCODONE HCL [Concomitant]
     Indication: FIBROMYALGIA
  5. OXYCODONE HCL [Concomitant]
     Indication: OSTEOARTHRITIS
  6. GABAPENTIN [Concomitant]
     Indication: FIBROMYALGIA
  7. TIZANIDINE HCL [Concomitant]
     Indication: MUSCULOSKELETAL STIFFNESS
  8. CITALOPRAM HYDROBROMIDE [Concomitant]
     Indication: DEPRESSION
  9. DIAZEPAM [Concomitant]
     Indication: STRESS
  10. UNKNOWN ALLERGY MEDICINE [Concomitant]
     Indication: MULTIPLE ALLERGIES
  11. TEMAZEPAM [Concomitant]
     Indication: INSOMNIA
  12. LAXATIVES [Concomitant]
     Indication: DRUG USE FOR UNKNOWN INDICATION
     Dosage: 3 PILLS IN THE AM  4 PILLS IN THE PM
     Route: 048
  13. ESTRADIOL CIPIONATE [Concomitant]
     Indication: BLOOD OESTROGEN
  14. LIDOCAINE [Concomitant]
     Indication: PAIN

REACTIONS (3)
  - FURUNCLE [None]
  - GENERAL PHYSICAL HEALTH DETERIORATION [None]
  - PAIN [None]
